FAERS Safety Report 8575436-8 (Version None)
Quarter: 2012Q2

REPORT INFORMATION
  Report Type: 
  Country: None (occurrence: None)
  Receive Date: 20120423
  Receipt Date: 20091102
  Transmission Date: 20120825
  Serious: Yes (Hospitalization)
  Sender: FDA-Public Use
  Company Number: PHEH2009US13636

PATIENT
  Age: 11 Year
  Sex: Female
  Weight: 54.3 kg

DRUGS (8)
  1. EXJADE [Suspect]
     Indication: SERUM FERRITIN INCREASED
     Dosage: 1000 MG PER DAY, ORAL UNK
     Route: 048
     Dates: start: 20080530
  2. EXJADE [Suspect]
     Indication: SICKLE CELL ANAEMIA
     Dosage: 1000 MG PER DAY, ORAL UNK
     Route: 048
     Dates: start: 20080530
  3. EXJADE [Suspect]
     Indication: IRON OVERLOAD
     Dosage: 1000 MG PER DAY, ORAL UNK
     Route: 048
     Dates: start: 20080530
  4. EXJADE [Suspect]
     Indication: SERUM FERRITIN INCREASED
     Dosage: 1000 MG PER DAY, ORAL UNK
     Route: 048
     Dates: end: 20080201
  5. EXJADE [Suspect]
     Indication: SICKLE CELL ANAEMIA
     Dosage: 1000 MG PER DAY, ORAL UNK
     Route: 048
     Dates: end: 20080201
  6. EXJADE [Suspect]
     Indication: IRON OVERLOAD
     Dosage: 1000 MG PER DAY, ORAL UNK
     Route: 048
     Dates: end: 20080201
  7. ASPIRIN [Concomitant]
  8. RED BLOOD CELLS (RED BLOOD CELLS) [Concomitant]

REACTIONS (5)
  - WHITE BLOOD CELL COUNT INCREASED [None]
  - CHOLECYSTECTOMY [None]
  - HAEMOGLOBIN DECREASED [None]
  - PYREXIA [None]
  - HAEMATOCRIT DECREASED [None]
